FAERS Safety Report 21056411 (Version 1)
Quarter: 2022Q3

REPORT INFORMATION
  Report Type: Report from Study
  Country: US (occurrence: US)
  Receive Date: 20220708
  Receipt Date: 20220708
  Transmission Date: 20221027
  Serious: Yes (Other)
  Sender: FDA-Public Use
  Company Number: US-BEH-2022147108

PATIENT
  Age: 3 Year
  Sex: Female

DRUGS (1)
  1. HIZENTRA [Suspect]
     Active Substance: HUMAN IMMUNOGLOBULIN G
     Indication: Primary immunodeficiency syndrome
     Dosage: 4 GRAM, BIW
     Route: 065
     Dates: start: 20220626

REACTIONS (2)
  - Attention deficit hyperactivity disorder [Unknown]
  - Psychomotor hyperactivity [Unknown]
